FAERS Safety Report 5862373-2 (Version None)
Quarter: 2008Q3

REPORT INFORMATION
  Report Type: 
  Country: None (occurrence: None)
  Receive Date: 20080828
  Receipt Date: 20080819
  Transmission Date: 20090109
  Serious: Yes (Other)
  Sender: FDA-Public Use
  Company Number: BR-JNJFOC-20080804515

PATIENT
  Sex: Female
  Weight: 51 kg

DRUGS (4)
  1. REMICADE [Suspect]
     Indication: RHEUMATOID ARTHRITIS
     Route: 042
  2. METHOTREXATE SODIUM [Concomitant]
     Indication: ARTHRITIS
     Route: 048
  3. FOLIC ACID [Concomitant]
     Indication: PROPHYLAXIS
     Route: 048
  4. SELENE [Concomitant]
     Indication: CONTRACEPTION
     Route: 048

REACTIONS (7)
  - ASTHENIA [None]
  - DYSPHAGIA [None]
  - MYALGIA [None]
  - POLYARTHRITIS [None]
  - PYREXIA [None]
  - RASH ERYTHEMATOUS [None]
  - SERUM SICKNESS [None]
